FAERS Safety Report 4605090-9 (Version None)
Quarter: 2005Q2

REPORT INFORMATION
  Report Type: 
  Country: None (occurrence: None)
  Receive Date: 20050217
  Receipt Date: 20041207
  Transmission Date: 20051028
  Serious: No
  Sender: FDA-Public Use
  Company Number: S04-USA-07668-01

PATIENT
  Age: 61 Year
  Sex: Female

DRUGS (3)
  1. NAMENDA [Suspect]
     Indication: AMNESIA
     Dosage: 10 MG BID; PO
     Route: 048
     Dates: start: 20040901
  2. REMINYL [Concomitant]
  3. METHOTREXATE [Concomitant]

REACTIONS (1)
  - RASH [None]
